FAERS Safety Report 8565574-8 (Version None)
Quarter: 2012Q3

REPORT INFORMATION
  Report Type: 
  Country: None (occurrence: None)
  Receive Date: 20120803
  Receipt Date: 20120724
  Transmission Date: 20120928
  Serious: Yes (Other)
  Sender: FDA-Public Use
  Company Number: US-PFIZER INC-2012121483

PATIENT
  Sex: Female
  Weight: 73.48 kg

DRUGS (9)
  1. TYLENOL (CAPLET) [Suspect]
     Indication: PAIN
     Dosage: 1-2 TABLETS EVERY 6 HOURS WHILE AWAKE FOR 3 WEEKS
     Route: 048
  2. TYLENOL [Suspect]
     Indication: PAIN
  3. NAPROXEN (ALEVE) [Suspect]
     Indication: PAIN
     Dosage: UNSPECIFIED, 1 OCCASIONALLY FOR FEW MONTHS 2-3 YEARS AGO
     Route: 065
  4. IBUPROFEN (ADVIL) [Suspect]
     Indication: PAIN
     Dosage: 3-4 DAILY FOR FEW MONTHS 2-3 YEARS AGO
  5. EXTRA STRENGTH TYLENOL PM [Suspect]
     Indication: SLEEP DISORDER THERAPY
     Dosage: CAPLET, 1 CAPLET NIGHTLY AT BEDTIME FOR ABOUT 4 MONTHS
     Route: 048
  6. CHANTIX [Suspect]
     Indication: SMOKING CESSATION THERAPY
     Dosage: TABLET, FOR 3 WEEKS 3-4 YEARS AGO
     Route: 048
     Dates: start: 20080101
  7. EXTRA STRENGTH TYLENOL [Suspect]
     Indication: PAIN
     Dosage: CAPLET, 2 CAPLETS EVERY 6 HOURS WHILE AWAKE FOR
     Route: 048
  8. DIAZEPAM [Concomitant]
     Indication: PAIN
     Dosage: UNKNOWN, AS NEEDED EITHER DAILY OR TWO TIMES IN A DAY
  9. PERCOCET [Suspect]
     Indication: PAIN
     Dosage: UNK

REACTIONS (13)
  - WEIGHT INCREASED [None]
  - LIVER DISORDER [None]
  - VITAMIN D DEFICIENCY [None]
  - URTICARIA [None]
  - ANXIETY [None]
  - SYSTEMIC LUPUS ERYTHEMATOSUS [None]
  - HYPERTENSION [None]
  - BLOOD CHOLESTEROL INCREASED [None]
  - LIVER INJURY [None]
  - HEPATIC PAIN [None]
  - DRUG ADMINISTRATION ERROR [None]
  - FEELING JITTERY [None]
  - PAIN [None]
